FAERS Safety Report 8342749 (Version 4)
Quarter: 2014Q3

REPORT INFORMATION
  Report Type: Spontaneous
  Country: GB (occurrence: GB)
  Receive Date: 20120119
  Receipt Date: 20140728
  Transmission Date: 20150326
  Serious: Yes (Hospitalization, Other)
  Sender: FDA-Public Use
  Company Number: GB-RANBAXY-2012R1-51781

PATIENT
  Age: 20 Year
  Sex: Female

DRUGS (6)
  1. AMOXICILLIN. [Suspect]
     Active Substance: AMOXICILLIN
     Indication: DYSPNOEA
  2. PREDNISOLONE. [Suspect]
     Active Substance: PREDNISOLONE
     Indication: COUGH
     Dosage: 5 MG, 6/ 1 DAYS
     Route: 065
     Dates: start: 20111226, end: 20111226
  3. SYMBICORT [Suspect]
     Active Substance: BUDESONIDE\FORMOTEROL FUMARATE DIHYDRATE
     Indication: ASTHMA
     Dosage: UNK
     Route: 065
  4. PREDNISOLONE. [Suspect]
     Active Substance: PREDNISOLONE
     Indication: DYSPNOEA
  5. SALBUTAMOL [Suspect]
     Active Substance: ALBUTEROL
     Indication: ASTHMA
     Dosage: UNK
     Route: 065
  6. AMOXICILLIN. [Suspect]
     Active Substance: AMOXICILLIN
     Indication: COUGH
     Dosage: 500 MG, TID
     Route: 065
     Dates: start: 20111226, end: 20111231

REACTIONS (4)
  - Pneumonia [Unknown]
  - Expired product administered [Unknown]
  - Medication error [Unknown]
  - Maternal exposure during pregnancy [Unknown]
